FAERS Safety Report 25620385 (Version 1)
Quarter: 2025Q3

REPORT INFORMATION
  Report Type: Spontaneous
  Country: EU (occurrence: EU)
  Receive Date: 20250730
  Receipt Date: 20250730
  Transmission Date: 20251020
  Serious: Yes (Death, Other)
  Sender: CELLTRION
  Company Number: EU-AMGEN-DEUSP2025085714

PATIENT

DRUGS (1)
  1. BEVACIZUMAB [Suspect]
     Active Substance: BEVACIZUMAB
     Indication: Meningioma
     Route: 065

REACTIONS (3)
  - Malignant meningioma metastatic [Fatal]
  - Neoplasm progression [Fatal]
  - Off label use [Unknown]
